FAERS Safety Report 8183421-3 (Version None)
Quarter: 2012Q1

REPORT INFORMATION
  Report Type: 
  Country: None (occurrence: None)
  Receive Date: 20120305
  Receipt Date: 20120227
  Transmission Date: 20120608
  Serious: Yes (Hospitalization)
  Sender: FDA-Public Use
  Company Number: JP-COVIDIEN/TYCO HEALTHCARE/MALLINCKRODT-T201200753

PATIENT
  Age: 34 Year
  Sex: Female

DRUGS (1)
  1. OPTIRAY 160 [Suspect]
     Dosage: 80 ML, SINGLE
     Route: 042
     Dates: start: 20120227, end: 20120227

REACTIONS (1)
  - ANAPHYLACTIC REACTION [None]
